FAERS Safety Report 19415940 (Version 1)
Quarter: 2021Q2

REPORT INFORMATION
  Report Type: Spontaneous
  Country: US (occurrence: US)
  Receive Date: 20210614
  Receipt Date: 20210614
  Transmission Date: 20210717
  Serious: Yes (Hospitalization)
  Sender: FDA-Public Use
  Company Number: None

PATIENT
  Age: 76 Year
  Sex: Male
  Weight: 75.5 kg

DRUGS (2)
  1. BAMLANIVIMAB 700 MG [Suspect]
     Active Substance: BAMLANIVIMAB
     Indication: COVID-19
     Route: 042
     Dates: start: 20210406, end: 20210406
  2. ETESEVIMAB 700 MG [Suspect]
     Active Substance: ETESEVIMAB
     Indication: COVID-19
     Route: 042
     Dates: start: 20210406, end: 20210406

REACTIONS (1)
  - Hospitalisation [None]

NARRATIVE: CASE EVENT DATE: 20210411
